FAERS Safety Report 8691300 (Version 3)
Quarter: 2013Q1

REPORT INFORMATION
  Report Type: Spontaneous
  Country: US (occurrence: US)
  Receive Date: 20120730
  Receipt Date: 20130204
  Transmission Date: 20140127
  Serious: Yes (Hospitalization, Other)
  Sender: FDA-Public Use
  Company Number: US-US-EMD SERONO, INC.-7140645

PATIENT
  Sex: Female
  Weight: 75 kg

DRUGS (3)
  1. REBIF [Suspect]
     Indication: MULTIPLE SCLEROSIS
     Route: 058
     Dates: start: 20110721
  2. REBIF [Suspect]
     Route: 058
     Dates: end: 201210
  3. LISINOPRIL [Suspect]
     Indication: HYPERTENSION
     Dates: start: 2011, end: 201207

REACTIONS (6)
  - Renal failure chronic [Not Recovered/Not Resolved]
  - Diabetes mellitus [Unknown]
  - Dysuria [Recovered/Resolved]
  - Dehydration [Unknown]
  - Muscle spasms [Unknown]
  - Injection site erythema [Not Recovered/Not Resolved]
